FAERS Safety Report 5944728-0 (Version None)
Quarter: 2008Q4

REPORT INFORMATION
  Report Type: 
  Country: None (occurrence: None)
  Receive Date: 20081107
  Receipt Date: 20081028
  Transmission Date: 20090506
  Serious: Yes (Hospitalization)
  Sender: FDA-Public Use
  Company Number: ES-ROCHE-594359

PATIENT
  Age: 67 Year
  Sex: Female

DRUGS (6)
  1. CELLCEPT [Suspect]
     Indication: LIVER TRANSPLANT
     Route: 048
     Dates: start: 20070201
  2. TACROLIMUS [Interacting]
     Indication: LIVER TRANSPLANT
     Dosage: DRUG NAME REPORTED AS - ^ TACROLIMUS (ADVAGRAF) ^
     Route: 048
     Dates: start: 20070201
  3. METFORMIN HCL [Concomitant]
     Indication: DIABETES MELLITUS
  4. AMIODARONE HCL [Concomitant]
     Indication: ATRIAL FIBRILLATION
  5. COZAAR [Concomitant]
     Indication: HYPERTENSION
     Dosage: DRUG NAME REPORTE AS - LOSARTAN POTASSIUM / COZAAR INICIO
  6. LANTUS [Concomitant]
     Indication: DIABETES MELLITUS
     Dosage: STRENGTH REPORTED AS- 100 UI/ML / VIAL
     Route: 058

REACTIONS (2)
  - DRUG INTERACTION [None]
  - LYMPHOPENIA [None]
